FAERS Safety Report 6866720-4 (Version None)
Quarter: 2010Q2

REPORT INFORMATION
  Report Type: 
  Country: None (occurrence: None)
  Receive Date: 20100610
  Receipt Date: 20100223
  Transmission Date: 20101027
  Serious: No
  Sender: FDA-Public Use
  Company Number: 2010SP012557

PATIENT
  Age: 35 Year
  Sex: Male

DRUGS (4)
  1. SAPHRIS [Suspect]
     Indication: SCHIZOAFFECTIVE DISORDER
     Dosage: 5 MG;BID;
  2. RISPERDAL [Concomitant]
  3. CELEXA [Concomitant]
  4. KLONOPIN [Concomitant]

REACTIONS (1)
  - OESOPHAGEAL SPASM [None]
